FAERS Safety Report 20126871 (Version 1)
Quarter: 2021Q4

REPORT INFORMATION
  Report Type: Spontaneous
  Country: ES (occurrence: ES)
  Receive Date: 20211129
  Receipt Date: 20211129
  Transmission Date: 20220303
  Serious: Yes (Other)
  Sender: FDA-Public Use
  Company Number: ES-ALLERGAN-2140032US

PATIENT
  Sex: Female

DRUGS (4)
  1. FOSFOMYCIN TROMETHAMINE [Suspect]
     Active Substance: FOSFOMYCIN TROMETHAMINE
     Indication: Urinary tract infection
     Dosage: 3 G
     Route: 048
     Dates: start: 20210909, end: 20210912
  2. CEFTRIAXONE [Suspect]
     Active Substance: CEFTRIAXONE
     Indication: Pyelonephritis
     Dosage: 1 G, QD
     Route: 042
     Dates: start: 20210916, end: 20210922
  3. FLUCONAZOLE [Suspect]
     Active Substance: FLUCONAZOLE
     Indication: Pyelonephritis acute
     Dosage: 200 MG
     Route: 048
     Dates: start: 20210916, end: 20210916
  4. AMOXICILLIN\CLAVULANIC ACID [Suspect]
     Active Substance: AMOXICILLIN\CLAVULANIC ACID
     Indication: Urinary tract infection
     Dosage: 1 DF, TID
     Route: 048
     Dates: start: 20210913, end: 20210916

REACTIONS (2)
  - Hepatitis cholestatic [Recovered/Resolved]
  - Overdose [Unknown]

NARRATIVE: CASE EVENT DATE: 20210917
